FAERS Safety Report 13940316 (Version 2)
Quarter: 2023Q1

REPORT INFORMATION
  Report Type: Spontaneous
  Country: FR (occurrence: FR)
  Receive Date: 20170906
  Receipt Date: 20230124
  Transmission Date: 20230417
  Serious: Yes (Hospitalization)
  Sender: FDA-Public Use
  Company Number: FR-SEPTODONT-201704226

PATIENT
  Age: 34 Year
  Sex: Female

DRUGS (4)
  1. SCANDONEST PLAIN [Suspect]
     Active Substance: MEPIVACAINE HYDROCHLORIDE
     Indication: Local anaesthesia
     Route: 004
     Dates: start: 200810
  2. PHLOROGLUCINOL [Concomitant]
     Active Substance: PHLOROGLUCINOL
  3. 1,3,5-TRIMETHOXYBENZENE [Concomitant]
     Active Substance: 1,3,5-TRIMETHOXYBENZENE
  4. MACROGOL 40000 [Concomitant]

REACTIONS (5)
  - Bell^s palsy [Recovered/Resolved]
  - Facial asymmetry [Recovered/Resolved]
  - Eyelid ptosis [Recovered/Resolved]
  - Oral discomfort [Recovered/Resolved]
  - Exposure during pregnancy [Unknown]

NARRATIVE: CASE EVENT DATE: 20081001
